FAERS Safety Report 5635015-9 (Version None)
Quarter: 2008Q1

REPORT INFORMATION
  Report Type: 
  Country: None (occurrence: None)
  Receive Date: 20080131
  Receipt Date: 20071019
  Transmission Date: 20080703
  Serious: No
  Sender: FDA-Public Use
  Company Number: 163-21880-07101176

PATIENT
  Age: 45 Year
  Sex: Female

DRUGS (3)
  1. REVLIMID [Suspect]
     Indication: MULTIPLE MYELOMA
     Dosage: 15 MG, DAILY X 21 DAYS, ORAL ; 20 MG, 2 IN 1 D, ORAL ; 10 MG, DAILY X 21 DAYS, ORAL
     Route: 048
     Dates: start: 20061211, end: 20070801
  2. REVLIMID [Suspect]
     Indication: MULTIPLE MYELOMA
     Dosage: 15 MG, DAILY X 21 DAYS, ORAL ; 20 MG, 2 IN 1 D, ORAL ; 10 MG, DAILY X 21 DAYS, ORAL
     Route: 048
     Dates: start: 20070814, end: 20071017
  3. REVLIMID [Suspect]
     Indication: MULTIPLE MYELOMA
     Dosage: 15 MG, DAILY X 21 DAYS, ORAL ; 20 MG, 2 IN 1 D, ORAL ; 10 MG, DAILY X 21 DAYS, ORAL
     Route: 048
     Dates: start: 20071020

REACTIONS (3)
  - PLATELET COUNT DECREASED [None]
  - PROTEIN TOTAL INCREASED [None]
  - WHITE BLOOD CELL COUNT DECREASED [None]
